FAERS Safety Report 7358220-2 (Version None)
Quarter: 2011Q1

REPORT INFORMATION
  Report Type: 
  Country: None (occurrence: None)
  Receive Date: 20110317
  Receipt Date: 20110309
  Transmission Date: 20110831
  Serious: Yes (Death, Life-Threatening, Hospitalization)
  Sender: FDA-Public Use
  Company Number: NZ-CELGENEUS-118-C5013-10121923

PATIENT
  Sex: Male
  Weight: 65.2 kg

DRUGS (14)
  1. CANDESARTAN [Concomitant]
     Indication: HYPERTENSION
     Dosage: 8 MILLIGRAM
     Route: 065
  2. CODEINE [Concomitant]
     Indication: PAIN
     Dosage: 60 MILLIGRAM
     Route: 065
  3. LENALIDOMIDE [Suspect]
     Dosage: 10 MILLIGRAM
     Route: 048
     Dates: start: 20101202, end: 20101214
  4. DEXAMETHASONE [Suspect]
     Dosage: 20 MILLIGRAM
     Route: 065
     Dates: start: 20101202, end: 20101209
  5. LACTULOSE [Concomitant]
     Indication: CONSTIPATION
     Dosage: 20 MILLILITER
     Route: 065
  6. LENALIDOMIDE [Suspect]
     Indication: MULTIPLE MYELOMA
     Dosage: 10 MILLIGRAM
     Route: 048
     Dates: start: 20101202
  7. METFORMIN HCL [Concomitant]
     Dosage: 500 MILLIGRAM
     Route: 065
  8. PANADOL [Concomitant]
     Indication: PAIN
     Dosage: 1000 MILLIGRAM
     Route: 065
  9. DEXAMETHASONE [Suspect]
     Indication: MULTIPLE MYELOMA
     Dosage: 20 MILLIGRAM
     Route: 065
     Dates: start: 20101202
  10. LATIN LATANOPROST [Concomitant]
     Indication: GLAUCOMA
     Dosage: 500 MILLIGRAM
     Route: 065
  11. TIMATOL [Concomitant]
     Indication: GLAUCOMA
     Dosage: 5 PERCENT
     Route: 065
  12. LAXSOL [Concomitant]
     Indication: CONSTIPATION
     Dosage: 2 TABLET
     Route: 065
  13. ASPEC [Concomitant]
     Indication: PROPHYLAXIS
     Dosage: 75 MILLIGRAM
     Route: 065
  14. AZELIAC ACID CREAM [Concomitant]
     Indication: ACNE
     Route: 061

REACTIONS (1)
  - NEUTROPENIC SEPSIS [None]
